FAERS Safety Report 23990219 (Version 1)
Quarter: 2024Q2

REPORT INFORMATION
  Report Type: Spontaneous
  Country: US (occurrence: US)
  Receive Date: 20240619
  Receipt Date: 20240619
  Transmission Date: 20240716
  Serious: No
  Sender: FDA-Public Use
  Company Number: US-Calliditas-2024CAL01088

PATIENT
  Age: 39 Year
  Sex: Male
  Weight: 93.44 kg

DRUGS (1)
  1. TARPEYO [Suspect]
     Active Substance: BUDESONIDE
     Indication: IgA nephropathy
     Dosage: EXPIRATION DATE: 30-JUN-2026
     Route: 048
     Dates: start: 20231024

REACTIONS (1)
  - Rash [Recovered/Resolved]
